FAERS Safety Report 4366262-4 (Version None)
Quarter: 2004Q2

REPORT INFORMATION
  Report Type: 
  Country: None (occurrence: None)
  Receive Date: 20040520
  Receipt Date: 20040511
  Transmission Date: 20050107
  Serious: Yes (Hospitalization, Other)
  Sender: FDA-Public Use
  Company Number: USA-2003-0005884

PATIENT
  Age: 34 Year
  Sex: Female
  Weight: 90.7 kg

DRUGS (45)
  1. OXYCONTIN [Suspect]
     Dosage: SEE IMAGE
     Route: 048
     Dates: start: 19991210
  2. XANAX [Suspect]
  3. COCAINE (COCAINE) [Suspect]
  4. MARIJUANA (CANNABIS) [Suspect]
  5. NEURONTIN [Concomitant]
  6. FLEXERIL [Concomitant]
  7. DOXEPIN (DOXEPIN) [Concomitant]
  8. REMERON [Concomitant]
  9. TRAZODONE HCL [Concomitant]
  10. AMBIEN [Concomitant]
  11. ZANAFLEX [Concomitant]
  12. CLONIDINE [Concomitant]
  13. VICODIN [Concomitant]
  14. INDERAL [Concomitant]
  15. ULTRAM [Concomitant]
  16. NAPROSYN [Concomitant]
  17. VALIUM [Concomitant]
  18. RISPERDAL [Concomitant]
  19. DEPAKOTE [Concomitant]
  20. THIAMINE (THIAMINE) [Concomitant]
  21. MELLARIL [Concomitant]
  22. IMITREX [Concomitant]
  23. LITHIUM (LITHIUM) [Concomitant]
  24. SEROQUEL [Concomitant]
  25. COGENTIN [Concomitant]
  26. TYLENOL W/ CODEINE NO. 3 [Concomitant]
  27. ALBUTEROL [Concomitant]
  28. KLONOPIN [Concomitant]
  29. ATARAX [Concomitant]
  30. ATIVAN [Concomitant]
  31. HALDOL [Concomitant]
  32. IMITREX ^GLAXO^ (SUMATRIPTAN) [Concomitant]
  33. LIBRIUM ^HOFFMAN^ (CHLORDIAZEPOXIDE HYDROCHLORIDE) [Concomitant]
  34. ATENOLOL [Concomitant]
  35. PERCOCET [Concomitant]
  36. PROZAC [Concomitant]
  37. MAXALT [Concomitant]
  38. SKELAXIN [Concomitant]
  39. ANTIVERT (ICOTINIC ACID, MECLOZIE HYDROCHLORIDE) [Concomitant]
  40. TRIMOX [Concomitant]
  41. RANITIDINE [Concomitant]
  42. NEXIUM [Concomitant]
  43. COMBIVENT [Concomitant]
  44. TEGRETOL [Concomitant]
  45. PROTONIX [Concomitant]

REACTIONS (46)
  - ABNORMAL BEHAVIOUR [None]
  - ACCIDENTAL OVERDOSE [None]
  - AGITATION [None]
  - ALCOHOL WITHDRAWAL SYNDROME [None]
  - ANXIETY [None]
  - ARTHRALGIA [None]
  - ASTHMA [None]
  - BIPOLAR I DISORDER [None]
  - BLOOD GLUCOSE DECREASED [None]
  - BLOOD GLUCOSE INCREASED [None]
  - BLOOD PROLACTIN INCREASED [None]
  - BRONCHITIS [None]
  - CHILLS [None]
  - DEPRESSED LEVEL OF CONSCIOUSNESS [None]
  - DEPRESSION [None]
  - DRUG ABUSER [None]
  - DRUG DEPENDENCE [None]
  - DRUG INEFFECTIVE [None]
  - DRUG WITHDRAWAL SYNDROME [None]
  - DUODENITIS [None]
  - DYSARTHRIA [None]
  - DYSPEPSIA [None]
  - DYSURIA [None]
  - GALACTORRHOEA [None]
  - GASTRITIS [None]
  - HALLUCINATION, AUDITORY [None]
  - HEADACHE [None]
  - HYPERTENSION [None]
  - INADEQUATE ANALGESIA [None]
  - INSOMNIA [None]
  - LYMPHADENOPATHY [None]
  - MENTAL DISORDER [None]
  - MIGRAINE [None]
  - MYDRIASIS [None]
  - NECK PAIN [None]
  - NIGHT SWEATS [None]
  - OVERDOSE [None]
  - PAIN [None]
  - PARAESTHESIA ORAL [None]
  - PSYCHOMOTOR HYPERACTIVITY [None]
  - PULMONARY CONGESTION [None]
  - RESPIRATORY RATE DECREASED [None]
  - SEDATION [None]
  - SINUSITIS [None]
  - THIRST [None]
  - VISION BLURRED [None]
